FAERS Safety Report 4679272-4 (Version None)
Quarter: 2005Q2

REPORT INFORMATION
  Report Type: 
  Country: None (occurrence: None)
  Receive Date: 20050531
  Receipt Date: 20050531
  Transmission Date: 20051028
  Serious: Yes (Other)
  Sender: FDA-Public Use
  Company Number: None

PATIENT
  Sex: Male
  Weight: 86.1834 kg

DRUGS (1)
  1. VIAGRA [Suspect]
     Dosage: 10 5 ORAL
     Route: 048

REACTIONS (2)
  - VISION BLURRED [None]
  - VISUAL DISTURBANCE [None]
